FAERS Safety Report 6451526-0 (Version None)
Quarter: 2009Q4

REPORT INFORMATION
  Report Type: 
  Country: None (occurrence: None)
  Receive Date: 20091120
  Receipt Date: 20091120
  Transmission Date: 20100525
  Serious: Yes (Other)
  Sender: FDA-Public Use
  Company Number: None

PATIENT
  Age: 30 Year
  Sex: Female
  Weight: 57.1532 kg

DRUGS (1)
  1. RESTASIS [Suspect]
     Indication: DRY EYE
     Dosage: 1 DROP IN EACH EYE TWICE A DAY OTIC
     Dates: start: 20090414, end: 20090515

REACTIONS (2)
  - HALO VISION [None]
  - VISUAL IMPAIRMENT [None]
